FAERS Safety Report 21461426 (Version 2)
Quarter: 2023Q1

REPORT INFORMATION
  Report Type: Report from Study
  Country: BR (occurrence: BR)
  Receive Date: 20221015
  Receipt Date: 20230112
  Transmission Date: 20230418
  Serious: Yes (Hospitalization)
  Sender: FDA-Public Use
  Company Number: BR-ABBOTT-2022A-1353834

PATIENT
  Sex: Female
  Weight: 54 kg

DRUGS (2)
  1. DEPAKOTE ER [Suspect]
     Active Substance: DIVALPROEX SODIUM
     Indication: Epilepsy
     Dosage: ONCE A DAY; DAILY DOSE: 500 MG, STARTED IN 2022
     Route: 048
  2. DEPAKOTE ER [Suspect]
     Active Substance: DIVALPROEX SODIUM
     Indication: Epilepsy
     Dosage: TIME INTERVAL: 0.33333333 DAYS: 3 TIMES A DAY; DAILY DOSE: 750 MG; STARTED DEPAKOTE ER ON 10-JULY...
     Route: 048
     Dates: start: 202207

REACTIONS (3)
  - Liver disorder [Unknown]
  - Inappropriate schedule of product administration [Recovered/Resolved]
  - Musculoskeletal chest pain [Unknown]

NARRATIVE: CASE EVENT DATE: 20220701
